FAERS Safety Report 25137587 (Version 1)
Quarter: 2025Q1

REPORT INFORMATION
  Report Type: Report from Study
  Country: PL (occurrence: PL)
  Receive Date: 20250329
  Receipt Date: 20250329
  Transmission Date: 20250409
  Serious: Yes (Hospitalization)
  Sender: AUROBINDO
  Company Number: PL-AUROBINDO-AUR-APL-2025-015745

PATIENT
  Age: 15 Year
  Sex: Male

DRUGS (3)
  1. METRONIDAZOLE [Suspect]
     Active Substance: METRONIDAZOLE
     Indication: Diarrhoea
     Route: 065
  2. ETHAMSYLATE [Suspect]
     Active Substance: ETHAMSYLATE
     Indication: Diarrhoea
     Route: 065
  3. TRANEXAMIC ACID [Suspect]
     Active Substance: TRANEXAMIC ACID
     Indication: Diarrhoea
     Route: 065

REACTIONS (1)
  - Disease recurrence [Unknown]
